FAERS Safety Report 18260528 (Version 1)
Quarter: 2020Q3

REPORT INFORMATION
  Report Type: Spontaneous
  Country: ES (occurrence: ES)
  Receive Date: 20200914
  Receipt Date: 20200914
  Transmission Date: 20201103
  Serious: Yes (Disabling)
  Sender: FDA-Public Use
  Company Number: ES-TEVA-2020-ES-1825699

PATIENT
  Sex: Male
  Weight: 90 kg

DRUGS (4)
  1. CIPROFLOXACINO (2049A) [Suspect]
     Active Substance: CIPROFLOXACIN
     Route: 048
     Dates: start: 20170701, end: 20170707
  2. EUTIROX 88 MICROGRAMOS COMPRIMIDOS , 100 COMPRIMIDOS [Concomitant]
     Indication: HYPOPITUITARISM
     Route: 048
     Dates: start: 20140901
  3. HIDROALTESONA COMPRIMIDOS, 30 COMPRIMIDOS [Concomitant]
     Active Substance: HYDROCORTISONE
     Indication: HYPOPITUITARISM
     Route: 048
     Dates: start: 20140901
  4. MINURIN 0,1 MILIGRAMOS/MILILITRO SOLUCION PARA PULVERIZACION NASAL, 1 [Concomitant]
     Indication: HYPOPITUITARISM
     Route: 048
     Dates: start: 20140901

REACTIONS (2)
  - Walking disability [Recovered/Resolved with Sequelae]
  - Pain in extremity [Recovered/Resolved with Sequelae]

NARRATIVE: CASE EVENT DATE: 20170705
